FAERS Safety Report 7092954-2 (Version None)
Quarter: 2010Q4

REPORT INFORMATION
  Report Type: 
  Country: None (occurrence: None)
  Receive Date: 20101110
  Receipt Date: 20101102
  Transmission Date: 20110411
  Serious: Yes (Death)
  Sender: FDA-Public Use
  Company Number: US-CELGENEUS-163-20785-10060033

PATIENT
  Sex: Female

DRUGS (13)
  1. THALOMID [Suspect]
     Route: 048
     Dates: start: 20100401, end: 20100101
  2. THALOMID [Suspect]
     Indication: RENAL FAILURE
     Route: 048
     Dates: start: 20100301
  3. IMURAN [Concomitant]
     Route: 065
  4. PREDNISONE [Concomitant]
     Route: 065
  5. COREG [Concomitant]
     Route: 065
  6. ASPIRIN [Concomitant]
     Route: 065
  7. ACIDOPHILUS [Concomitant]
     Route: 065
  8. PREVACID [Concomitant]
     Route: 065
  9. IMDUR [Concomitant]
     Route: 065
  10. SYNTHROID [Concomitant]
     Route: 065
  11. CALCIUM [Concomitant]
     Route: 065
  12. ATARAX [Concomitant]
     Route: 065
  13. NEURONTIN [Concomitant]
     Route: 065

REACTIONS (3)
  - DYSPNOEA [None]
  - FATIGUE [None]
  - RENAL FAILURE [None]
